FAERS Safety Report 16191637 (Version 3)
Quarter: 2019Q2

REPORT INFORMATION
  Report Type: Spontaneous
  Country: ES (occurrence: ES)
  Receive Date: 20190412
  Receipt Date: 20190429
  Transmission Date: 20190711
  Serious: Yes (Other)
  Sender: FDA-Public Use
  Company Number: ES-ASTRAZENECA-2019SE55471

PATIENT
  Age: 61 Year
  Sex: Female

DRUGS (16)
  1. CANDESARTAN CILEXETIL. [Suspect]
     Active Substance: CANDESARTAN CILEXETIL
     Indication: MIGRAINE WITHOUT AURA
     Route: 048
  2. VENLAFAXINE [Concomitant]
     Active Substance: VENLAFAXINE HYDROCHLORIDE
     Indication: PRODUCT USED FOR UNKNOWN INDICATION
  3. QUETIAPINE. [Suspect]
     Active Substance: QUETIAPINE
     Indication: MIGRAINE WITHOUT AURA
     Route: 048
  4. SUMATRIPTAN. [Suspect]
     Active Substance: SUMATRIPTAN
     Indication: MIGRAINE WITHOUT AURA
     Route: 058
  5. ELETRIPTAN. [Concomitant]
     Active Substance: ELETRIPTAN
     Indication: PRODUCT USED FOR UNKNOWN INDICATION
     Route: 048
  6. VALPROATE BISMUTH [Concomitant]
     Active Substance: VALPROATE BISMUTH
     Indication: MIGRAINE
  7. BOTULINUM TOXIN TYPE A [Suspect]
     Active Substance: BOTULINUM TOXIN TYPE A
     Indication: MIGRAINE WITHOUT AURA
     Dosage: 195.0DF UNKNOWN
     Route: 065
  8. FROVATRIPTAN. [Concomitant]
     Active Substance: FROVATRIPTAN
     Indication: PRODUCT USED FOR UNKNOWN INDICATION
     Route: 048
  9. IBUPROFEN. [Concomitant]
     Active Substance: IBUPROFEN
     Indication: MIGRAINE
  10. DEXKETOPROFEN [Concomitant]
     Active Substance: DEXKETOPROFEN
     Indication: PRODUCT USED FOR UNKNOWN INDICATION
  11. OLANZAPINE. [Suspect]
     Active Substance: OLANZAPINE
     Indication: MIGRAINE WITHOUT AURA
     Route: 065
  12. TOPIRAMATE. [Suspect]
     Active Substance: TOPIRAMATE
     Indication: MIGRAINE WITHOUT AURA
     Route: 065
  13. LISINOPRIL. [Concomitant]
     Active Substance: LISINOPRIL
     Indication: PRODUCT USED FOR UNKNOWN INDICATION
  14. ZONISAMIDE. [Suspect]
     Active Substance: ZONISAMIDE
     Indication: MIGRAINE WITHOUT AURA
     Route: 065
  15. OMEPRAZOLE. [Concomitant]
     Active Substance: OMEPRAZOLE
     Indication: DYSPEPSIA
  16. NAPROXEN. [Concomitant]
     Active Substance: NAPROXEN
     Indication: PRODUCT USED FOR UNKNOWN INDICATION
     Route: 048

REACTIONS (9)
  - Lichen planus [Unknown]
  - Condition aggravated [Unknown]
  - Migraine [Unknown]
  - Pain [Unknown]
  - Seizure [Unknown]
  - Product use in unapproved indication [Unknown]
  - Depression [Unknown]
  - Cognitive disorder [Unknown]
  - Drug ineffective [Unknown]
